FAERS Safety Report 22145923 (Version 1)
Quarter: 2023Q1

REPORT INFORMATION
  Report Type: Spontaneous
  Country: US (occurrence: None)
  Receive Date: 20230327
  Receipt Date: 20230327
  Transmission Date: 20230417
  Serious: Yes (Hospitalization)
  Sender: FDA-Public Use
  Company Number: None

PATIENT
  Sex: Female

DRUGS (1)
  1. CAPECITABINE [Suspect]
     Active Substance: CAPECITABINE
     Dosage: FREQUENCY : TWICE A DAY;?
     Route: 048
     Dates: start: 202212

REACTIONS (8)
  - Loss of consciousness [None]
  - Oral mucosal blistering [None]
  - Abdominal pain upper [None]
  - Hypotension [None]
  - Urinary tract infection [None]
  - Fatigue [None]
  - Blister [None]
  - Vomiting [None]
